FAERS Safety Report 9125140 (Version 1)
Quarter: 2013Q1

REPORT INFORMATION
  Report Type: Spontaneous
  Country: US (occurrence: US)
  Receive Date: 20130227
  Receipt Date: 20130227
  Transmission Date: 20140127
  Serious: Yes (Death, Hospitalization, Other)
  Sender: FDA-Public Use
  Company Number: PHEH2013US004678

PATIENT
  Sex: Male

DRUGS (4)
  1. MYFORTIC [Suspect]
     Dosage: 4 DF, BID
     Route: 048
  2. PREDNISONE [Concomitant]
  3. PROGRAF [Concomitant]
  4. ARAVA [Concomitant]

REACTIONS (5)
  - Sepsis [Fatal]
  - Renal failure [Unknown]
  - Gastrointestinal haemorrhage [Unknown]
  - BK virus infection [Unknown]
  - Kidney transplant rejection [Unknown]
